FAERS Safety Report 13350012 (Version 1)
Quarter: 2017Q1

REPORT INFORMATION
  Report Type: Spontaneous
  Country: US (occurrence: US)
  Receive Date: 20170317
  Receipt Date: 20170317
  Transmission Date: 20170429
  Serious: Yes (Death)
  Sender: FDA-Public Use
  Company Number: None

PATIENT
  Age: 80 Year
  Sex: Male

DRUGS (18)
  1. FERROUS SULFATE. [Concomitant]
     Active Substance: FERROUS SULFATE
  2. METOPROLOL. [Concomitant]
     Active Substance: METOPROLOL
  3. PAROXETINE. [Concomitant]
     Active Substance: PAROXETINE
  4. PREDNISONE. [Concomitant]
     Active Substance: PREDNISONE
  5. SYMBICORT [Concomitant]
     Active Substance: BUDESONIDE\FORMOTEROL FUMARATE DIHYDRATE
  6. AMLODIPINE [Concomitant]
     Active Substance: AMLODIPINE BESYLATE
  7. ASPIRIN. [Concomitant]
     Active Substance: ASPIRIN
  8. FOLIC ACID. [Concomitant]
     Active Substance: FOLIC ACID
  9. CYCLOSPORINE APOTEX [Suspect]
     Active Substance: CYCLOSPORINE
     Indication: RENAL TRANSPLANT
     Dosage: THREE 25MG CAPSULES TWICE DAILY ORALLY
     Route: 048
     Dates: start: 20151118
  10. CALCITROL [Concomitant]
     Active Substance: CALCITRIOL
  11. DEXILANT [Concomitant]
     Active Substance: DEXLANSOPRAZOLE
  12. NITROGLYCERINE [Concomitant]
     Active Substance: NITROGLYCERIN
  13. OSCAL [Concomitant]
     Active Substance: CALCIUM CARBONATE
  14. SPIRIVA [Concomitant]
     Active Substance: TIOTROPIUM BROMIDE MONOHYDRATE
  15. LOSARTAN. [Concomitant]
     Active Substance: LOSARTAN
  16. MULTIVITAMIN [Concomitant]
     Active Substance: VITAMINS
  17. FENOFIBRATE. [Concomitant]
     Active Substance: FENOFIBRATE
  18. ISOSORBIDE. [Concomitant]
     Active Substance: ISOSORBIDE

REACTIONS (1)
  - Death [None]

NARRATIVE: CASE EVENT DATE: 201703
